FAERS Safety Report 24693741 (Version 1)
Quarter: 2024Q4

REPORT INFORMATION
  Report Type: Report from Study
  Country: US (occurrence: US)
  Receive Date: 20241204
  Receipt Date: 20241204
  Transmission Date: 20250114
  Serious: Yes (Other)
  Sender: UCB
  Company Number: US-UCBSA-2024062894

PATIENT
  Age: 14 Year
  Sex: Female
  Weight: 28.6 kg

DRUGS (1)
  1. FINTEPLA [Suspect]
     Active Substance: FENFLURAMINE
     Indication: Severe myoclonic epilepsy of infancy
     Dosage: 22 MG/DAY
     Dates: start: 202012

REACTIONS (1)
  - Tricuspid valve incompetence [Unknown]

NARRATIVE: CASE EVENT DATE: 20241030
